FAERS Safety Report 13840968 (Version 2)
Quarter: 2017Q3

REPORT INFORMATION
  Report Type: Spontaneous
  Country: US (occurrence: US)
  Receive Date: 20170807
  Receipt Date: 20170815
  Transmission Date: 20171127
  Serious: Yes (Other)
  Sender: FDA-Public Use
  Company Number: US-BAUSCH-BL-2017-023166

PATIENT
  Age: 67 Year
  Sex: Female

DRUGS (3)
  1. XENAZINE [Suspect]
     Active Substance: TETRABENAZINE
     Dosage: TITRATED DOWN THE DOSE OF THE XENAZINE (UNSPECIFIED)
     Route: 048
     Dates: start: 20170709, end: 20170802
  2. CLONAZEPAM. [Concomitant]
     Active Substance: CLONAZEPAM
     Indication: PRODUCT USED FOR UNKNOWN INDICATION
     Route: 048
  3. XENAZINE [Suspect]
     Active Substance: TETRABENAZINE
     Indication: HUNTINGTON^S DISEASE
     Route: 048
     Dates: start: 20160405

REACTIONS (11)
  - Gait inability [Unknown]
  - Muscle spasms [Unknown]
  - Balance disorder [Unknown]
  - Suicidal ideation [Recovering/Resolving]
  - Back pain [Unknown]
  - Fall [Recovering/Resolving]
  - Feeling guilty [Recovering/Resolving]
  - Myalgia [Recovering/Resolving]
  - Tremor [Unknown]
  - Treatment noncompliance [Unknown]
  - Depression [Recovering/Resolving]

NARRATIVE: CASE EVENT DATE: 20170709
